FAERS Safety Report 25762937 (Version 1)
Quarter: 2025Q3

REPORT INFORMATION
  Report Type: Spontaneous
  Country: JP (occurrence: JP)
  Receive Date: 20250904
  Receipt Date: 20250904
  Transmission Date: 20251021
  Serious: Yes (Other)
  Sender: TAKEDA
  Company Number: JP-TAKEDA-2025TJP009026

PATIENT
  Age: 66 Year
  Sex: Male

DRUGS (1)
  1. FRUZAQLA [Suspect]
     Active Substance: FRUQUINTINIB
     Indication: Colon cancer
     Dosage: 5 MILLIGRAM, QD

REACTIONS (6)
  - Colon cancer [Unknown]
  - Malaise [Unknown]
  - Erythema [Unknown]
  - Hypertension [Unknown]
  - Proteinuria [Unknown]
  - Stomatitis [Unknown]
